FAERS Safety Report 10525316 (Version 1)
Quarter: 2014Q4

REPORT INFORMATION
  Report Type: Report from Study
  Country: DE (occurrence: DE)
  Receive Date: 20141017
  Receipt Date: 20141017
  Transmission Date: 20150528
  Serious: Yes (Hospitalization)
  Sender: FDA-Public Use
  Company Number: DE-TEVA-515633GER

PATIENT
  Age: 63 Year
  Sex: Male

DRUGS (9)
  1. DOXORUBICIN NOS [Suspect]
     Active Substance: DOXORUBICIN
     Indication: MANTLE CELL LYMPHOMA
     Dosage: 100 MILLIGRAM DAILY;
     Route: 065
     Dates: start: 20140902, end: 20140902
  2. VINCRISTINE [Suspect]
     Active Substance: VINCRISTINE
     Indication: MANTLE CELL LYMPHOMA
     Dosage: 2 MILLIGRAM DAILY;
     Route: 065
     Dates: start: 20140902, end: 20140902
  3. CISPLATIN. [Suspect]
     Active Substance: CISPLATIN
     Indication: MANTLE CELL LYMPHOMA
     Dosage: 200 MILLIGRAM DAILY;
     Route: 065
     Dates: start: 20140807, end: 20140807
  4. DEXAMETHASONE. [Suspect]
     Active Substance: DEXAMETHASONE
     Indication: MANTLE CELL LYMPHOMA
     Dosage: 160 MILLIGRAM DAILY;
     Route: 065
     Dates: start: 20140807, end: 20140810
  5. PREDNISONE. [Suspect]
     Active Substance: PREDNISONE
     Indication: MANTLE CELL LYMPHOMA
     Dosage: 500 MILLIGRAM DAILY;
     Route: 065
     Dates: start: 20140902, end: 20140906
  6. RITUXIMAB [Suspect]
     Active Substance: RITUXIMAB
     Dosage: 746 MILLIGRAM DAILY; CYCLE 5 DAY 1
     Route: 042
     Dates: start: 20140902, end: 20140902
  7. RITUXIMAB [Suspect]
     Active Substance: RITUXIMAB
     Indication: MANTLE CELL LYMPHOMA
     Dosage: 750 MILLIGRAM DAILY; CYCLE 4
     Route: 042
     Dates: start: 20140807, end: 20140807
  8. CYCLOPHOSPHAMIDE. [Suspect]
     Active Substance: CYCLOPHOSPHAMIDE
     Indication: B-CELL LYMPHOMA
     Dosage: 1493 MICROGRAM DAILY;
     Route: 065
     Dates: start: 20140902, end: 20140902
  9. CYTARABINE. [Suspect]
     Active Substance: CYTARABINE
     Indication: MANTLE CELL LYMPHOMA
     Dosage: 8 GRAM DAILY;
     Route: 065
     Dates: start: 20140808, end: 20140808

REACTIONS (2)
  - Escherichia sepsis [Recovered/Resolved]
  - Pyrexia [Recovered/Resolved]

NARRATIVE: CASE EVENT DATE: 20140828
